FAERS Safety Report 24084799 (Version 2)
Quarter: 2024Q3

REPORT INFORMATION
  Report Type: Spontaneous
  Country: CA (occurrence: CA)
  Receive Date: 20240712
  Receipt Date: 20240807
  Transmission Date: 20241016
  Serious: Yes (Death, Other)
  Sender: TAKEDA
  Company Number: CA-TAKEDA-2024TUS070516

PATIENT
  Age: 38 Year
  Sex: Male
  Weight: 87 kg

DRUGS (4)
  1. FRUQUINTINIB [Suspect]
     Active Substance: FRUQUINTINIB
     Indication: Colorectal cancer metastatic
     Dosage: 5 MILLIGRAM
     Route: 048
     Dates: start: 20240326, end: 20240606
  2. FRUQUINTINIB [Suspect]
     Active Substance: FRUQUINTINIB
     Dosage: UNK
     Route: 065
     Dates: end: 20240709
  3. KADIAN [Concomitant]
     Active Substance: MORPHINE SULFATE
     Indication: Pain
     Dosage: 40 MILLIGRAM, QD
     Route: 065
     Dates: start: 20240304
  4. MORPHINE [Concomitant]
     Active Substance: MORPHINE
     Indication: Pain
     Dosage: 5 MILLIGRAM
     Route: 048
     Dates: start: 20240304

REACTIONS (4)
  - Death [Fatal]
  - Colorectal cancer metastatic [Unknown]
  - Embolism [Recovered/Resolved]
  - Blood pressure diastolic increased [Unknown]

NARRATIVE: CASE EVENT DATE: 20240606
